FAERS Safety Report 7110063-0 (Version None)
Quarter: 2010Q4

REPORT INFORMATION
  Report Type: 
  Country: None (occurrence: None)
  Receive Date: 20101112
  Receipt Date: 20101027
  Transmission Date: 20110411
  Serious: Yes (Hospitalization)
  Sender: FDA-Public Use
  Company Number: 1-18212726

PATIENT
  Age: 56 Year
  Sex: Female
  Weight: 73.9363 kg

DRUGS (4)
  1. QUALAQUIN [Suspect]
     Indication: MUSCLE SPASMS
     Dosage: 1 CAPSULE, DAILY, ORAL
     Route: 048
     Dates: start: 20071227, end: 20080901
  2. RHO(D) IMMUNE GLOBULIN NOS [Suspect]
     Dates: start: 20080101
  3. LOTREL (BENAZEPRIL HYDROCHLORIDE AND AMLODIPINE BESYLATE) [Concomitant]
  4. PREMPRO [Concomitant]

REACTIONS (4)
  - ADVERSE EVENT [None]
  - DRUG HYPERSENSITIVITY [None]
  - IDIOPATHIC THROMBOCYTOPENIC PURPURA [None]
  - THROMBOTIC THROMBOCYTOPENIC PURPURA [None]
